FAERS Safety Report 10207593 (Version 1)
Quarter: 2014Q2

REPORT INFORMATION
  Report Type: Spontaneous
  Country: US (occurrence: None)
  Receive Date: 20140527
  Receipt Date: 20140527
  Transmission Date: 20141212
  Serious: Yes (Other)
  Sender: FDA-Public Use
  Company Number: 2318771

PATIENT
  Age: 0 Day
  Sex: Male
  Weight: 2.07 kg

DRUGS (2)
  1. BUPIVACAINE HCL [Suspect]
     Route: 064
  2. (ANESTHETICS, GENERAL) [Suspect]
     Route: 064

REACTIONS (8)
  - Maternal drugs affecting foetus [None]
  - Apgar score low [None]
  - Foetal disorder [None]
  - Umbilical cord around neck [None]
  - Foetal heart rate abnormal [None]
  - Contusion [None]
  - Neonatal disorder [None]
  - Floppy infant [None]
